FAERS Safety Report 8820677 (Version 5)
Quarter: 2013Q1

REPORT INFORMATION
  Report Type: Spontaneous
  Country: SE (occurrence: SE)
  Receive Date: 20121002
  Receipt Date: 20130221
  Transmission Date: 20140127
  Serious: Yes (Death, Other)
  Sender: FDA-Public Use
  Company Number: SE-ABBOTT-12P-150-0990105-00

PATIENT
  Age: 29 None
  Sex: Male

DRUGS (2)
  1. HUMIRA [Suspect]
     Indication: CROHN^S DISEASE
     Route: 058
     Dates: start: 200506
  2. IMUREL [Concomitant]
     Indication: PRODUCT USED FOR UNKNOWN INDICATION
     Dosage: 150 MG DAILY

REACTIONS (6)
  - Adverse drug reaction [Fatal]
  - Gastrointestinal inflammation [Unknown]
  - Enterovesical fistula [Unknown]
  - Intestinal anastomosis complication [Unknown]
  - Ileus [Unknown]
  - Cholelithiasis [Unknown]
